FAERS Safety Report 6686005-9 (Version None)
Quarter: 2010Q2

REPORT INFORMATION
  Report Type: 
  Country: None (occurrence: None)
  Receive Date: 20100419
  Receipt Date: 20100415
  Transmission Date: 20101027
  Serious: Yes (Death, Hospitalization)
  Sender: FDA-Public Use
  Company Number: PHHY2010JP09773

PATIENT
  Sex: Male
  Weight: 72 kg

DRUGS (10)
  1. RASILEZ [Suspect]
     Indication: HYPERTENSION
     Dosage: 150 MG, QD
     Route: 048
     Dates: start: 20100109
  2. PANALDINE [Concomitant]
     Indication: ISCHAEMIA
     Dosage: 200 MG, UNK
     Route: 048
  3. HYPEN [Concomitant]
     Indication: PAIN
     Dosage: 400 MG, UNK
     Route: 048
  4. AVAPRO [Concomitant]
     Indication: HYPERTENSION
     Dosage: 100 MG, UNK
     Route: 048
  5. CALBLOCK [Concomitant]
     Indication: HYPERTENSION
     Dosage: 16 MG, UNK
     Route: 048
  6. REMITCH [Concomitant]
     Indication: PRURITUS
     Dosage: 2.5 UG, UNK
     Route: 048
  7. ARTIST [Concomitant]
     Indication: CARDIAC FAILURE
     Dosage: 2.5 MG, UNK
     Route: 048
  8. DOGMATYL [Concomitant]
     Indication: INSOMNIA
     Dosage: 50 MG, UNK
  9. ADALAT CC [Concomitant]
     Indication: HYPERTENSION
     Dosage: 20 MG, UNK
     Route: 048
  10. ALFAROL [Concomitant]
     Indication: RENAL FAILURE
     Dosage: 0.5 UG, UNK
     Route: 048

REACTIONS (4)
  - DYSPNOEA [None]
  - HAEMATOCRIT DECREASED [None]
  - HAEMOGLOBIN DECREASED [None]
  - RED BLOOD CELL COUNT DECREASED [None]
